FAERS Safety Report 5757586-4 (Version None)
Quarter: 2008Q2

REPORT INFORMATION
  Report Type: 
  Country: None (occurrence: None)
  Receive Date: 20080603
  Receipt Date: 20080526
  Transmission Date: 20081010
  Serious: Yes (Death)
  Sender: FDA-Public Use
  Company Number: NO-PFIZER INC-2008030160

PATIENT
  Sex: Female

DRUGS (5)
  1. GENOTROPIN [Suspect]
     Indication: HYPOPITUITARISM
     Route: 058
     Dates: start: 19900313, end: 20030101
  2. GENOTROPIN [Suspect]
     Route: 058
     Dates: start: 20030219, end: 20030223
  3. THYROXIN [Concomitant]
     Route: 048
  4. DESMOPRESSIN ACETATE [Concomitant]
     Route: 048
  5. CORTONE [Concomitant]
     Route: 048

REACTIONS (2)
  - CONDITION AGGRAVATED [None]
  - CRANIOPHARYNGIOMA [None]
